FAERS Safety Report 10048090 (Version 2)
Quarter: 2014Q4

REPORT INFORMATION
  Report Type: Spontaneous
  Country: US (occurrence: None)
  Receive Date: 20140327
  Receipt Date: 20141016
  Transmission Date: 20150528
  Serious: Yes (Other)
  Sender: FDA-Public Use
  Company Number: 2014-US-003026

PATIENT
  Age: 50 Year
  Sex: Female
  Weight: 49 kg

DRUGS (3)
  1. XYREM [Suspect]
     Active Substance: SODIUM OXYBATE
     Indication: NARCOLEPSY
     Route: 048
     Dates: start: 201205
  2. AMOXICILLIN (AMOXICILLIN TRIHYDRATE) [Suspect]
     Active Substance: AMOXICILLIN
     Indication: SINUSITIS
     Route: 048
     Dates: start: 201401
  3. XYREM [Suspect]
     Active Substance: SODIUM OXYBATE
     Indication: CATAPLEXY
     Route: 048
     Dates: start: 201205

REACTIONS (9)
  - Immunodeficiency common variable [None]
  - Weight decreased [None]
  - Diarrhoea [None]
  - Sinusitis [None]
  - Treatment failure [None]
  - Nausea [None]
  - Vomiting [None]
  - Colitis [None]
  - Rash pruritic [None]

NARRATIVE: CASE EVENT DATE: 201401
